FAERS Safety Report 15821178 (Version 1)
Quarter: 2019Q1

REPORT INFORMATION
  Report Type: Spontaneous
  Country: FR (occurrence: FR)
  Receive Date: 20190114
  Receipt Date: 20190114
  Transmission Date: 20190417
  Serious: Yes (Hospitalization, Other)
  Sender: FDA-Public Use
  Company Number: FR-OTSUKA-21634845

PATIENT
  Age: 33 Year
  Sex: Female

DRUGS (1)
  1. ABILIFY [Suspect]
     Active Substance: ARIPIPRAZOLE
     Indication: PRODUCT USED FOR UNKNOWN INDICATION
     Dosage: UNK
     Route: 048
     Dates: start: 2011, end: 201309

REACTIONS (2)
  - Focal nodular hyperplasia [Not Recovered/Not Resolved]
  - Hepatic adenoma [Not Recovered/Not Resolved]

NARRATIVE: CASE EVENT DATE: 201404
